FAERS Safety Report 24048726 (Version 1)
Quarter: 2024Q3

REPORT INFORMATION
  Report Type: Spontaneous
  Country: US (occurrence: US)
  Receive Date: 20240704
  Receipt Date: 20240704
  Transmission Date: 20241016
  Serious: Yes (Other)
  Sender: APOTEX
  Company Number: US-APOTEX-2024AP007631

PATIENT
  Age: 37 Year
  Sex: Male

DRUGS (2)
  1. GEMCITABINE [Suspect]
     Active Substance: GEMCITABINE
     Indication: Cutaneous T-cell lymphoma
     Dosage: UNK, 1 DOSE
     Route: 065
  2. GEMCITABINE [Suspect]
     Active Substance: GEMCITABINE
     Indication: Malignant neoplasm progression

REACTIONS (6)
  - Cytopenia [Unknown]
  - Fatigue [Unknown]
  - Performance status decreased [Unknown]
  - Asthenia [Unknown]
  - Pyrexia [Unknown]
  - Drug ineffective [Unknown]
